FAERS Safety Report 4402726-2 (Version None)
Quarter: 2004Q3

REPORT INFORMATION
  Report Type: 
  Country: None (occurrence: None)
  Receive Date: 20040721
  Receipt Date: 20030618
  Transmission Date: 20050211
  Serious: No
  Sender: FDA-Public Use
  Company Number: US-BRISTOL-MYERS SQUIBB COMPANY-12387395

PATIENT
  Age: 56 Year
  Sex: Female
  Weight: 84 kg

DRUGS (5)
  1. ESTRACE [Suspect]
     Indication: MENOPAUSE
     Route: 048
     Dates: start: 19970101
  2. ADVAIR DISKUS 100/50 [Concomitant]
     Indication: MULTIPLE ALLERGIES
     Route: 048
     Dates: start: 20030301
  3. VASOTEC [Concomitant]
     Indication: HYPERTENSION
     Dates: start: 20030613
  4. AMBIEN [Concomitant]
     Indication: SLEEP DISORDER
  5. ALLERGY MEDICATIONS [Concomitant]
     Dosage: INJECTION

REACTIONS (2)
  - INSOMNIA [None]
  - NIGHT SWEATS [None]
